FAERS Safety Report 9310775 (Version 1)
Quarter: 2013Q2

REPORT INFORMATION
  Report Type: Spontaneous
  Country: US (occurrence: US)
  Receive Date: 20130528
  Receipt Date: 20130528
  Transmission Date: 20140414
  Serious: Yes (Hospitalization)
  Sender: FDA-Public Use
  Company Number: US-AMGEN-USASP2013037146

PATIENT
  Age: 53 Year
  Sex: Female

DRUGS (4)
  1. NEULASTA [Suspect]
     Indication: NEUTROPENIA
     Dosage: UNK
  2. TAXOTERE [Concomitant]
     Dosage: UNK
  3. CARBOPLATIN [Concomitant]
     Dosage: UNK
  4. HERCEPTIN [Concomitant]
     Dosage: UNK

REACTIONS (3)
  - Mobility decreased [Recovering/Resolving]
  - Musculoskeletal stiffness [Recovering/Resolving]
  - Bone pain [Not Recovered/Not Resolved]
